FAERS Safety Report 9870280 (Version 2)
Quarter: 2014Q1

REPORT INFORMATION
  Report Type: Spontaneous
  Country: US (occurrence: US)
  Receive Date: 20140205
  Receipt Date: 20140226
  Transmission Date: 20141002
  Serious: Yes (Hospitalization)
  Sender: FDA-Public Use
  Company Number: US-INCYTE CORPORATION-2014IN000254

PATIENT
  Sex: Male

DRUGS (6)
  1. JAKAFI [Suspect]
     Indication: MYELOFIBROSIS
     Dosage: 5 MG, BID
     Route: 048
     Dates: start: 201304
  2. JAKAFI [Suspect]
     Dosage: 5 MG, BID
     Route: 048
  3. OXYCODONE / ACETAMINOPHEN [Concomitant]
  4. WARFARIN [Concomitant]
  5. HYDROCODONE W/HOMATROPINE [Concomitant]
  6. IBUPROFEN [Concomitant]

REACTIONS (3)
  - Hospitalisation [Unknown]
  - Malaise [Unknown]
  - Drug dose omission [Unknown]
